FAERS Safety Report 25190641 (Version 2)
Quarter: 2025Q2

REPORT INFORMATION
  Report Type: Other
  Country: FR (occurrence: None)
  Receive Date: 20250411
  Receipt Date: 20250505
  Transmission Date: 20250716
  Serious: Yes (Other)
  Sender: INCYTE
  Company Number: None

PATIENT
  Age: 68 Year

DRUGS (5)
  1. RUXOLITINIB [Suspect]
     Active Substance: RUXOLITINIB
     Indication: Polycythaemia vera
  2. ANAGRELIDE [Suspect]
     Active Substance: ANAGRELIDE
     Indication: Polycythaemia vera
  3. PEGASYS [Suspect]
     Active Substance: PEGINTERFERON ALFA-2A
     Indication: Polycythaemia vera
  4. PEGASYS [Suspect]
     Active Substance: PEGINTERFERON ALFA-2A
  5. HYDROXYUREA [Suspect]
     Active Substance: HYDROXYUREA
     Indication: Polycythaemia vera

REACTIONS (2)
  - Basal cell carcinoma [Not Recovered/Not Resolved]
  - Basal cell carcinoma [Not Recovered/Not Resolved]
